FAERS Safety Report 22026668 (Version 2)
Quarter: 2024Q1

REPORT INFORMATION
  Report Type: Spontaneous
  Country: US (occurrence: None)
  Receive Date: 20230223
  Receipt Date: 20240207
  Transmission Date: 20240409
  Serious: No
  Sender: FDA-Public Use
  Company Number: US-ROCHE-3180210

PATIENT
  Sex: Female

DRUGS (1)
  1. XOLAIR [Suspect]
     Active Substance: OMALIZUMAB
     Indication: Idiopathic urticaria
     Dosage: LAST DOSE ON XOLAIR WAS 16/SEP/2022?FORM OF ADMIN: VIAL
     Route: 058

REACTIONS (2)
  - Maternal exposure during pregnancy [Unknown]
  - Hypertension [Recovered/Resolved]
